FAERS Safety Report 7740885-4 (Version None)
Quarter: 2011Q3

REPORT INFORMATION
  Report Type: 
  Country: None (occurrence: None)
  Receive Date: 20110909
  Receipt Date: 20110907
  Transmission Date: 20111222
  Serious: Yes (Death, Hospitalization)
  Sender: FDA-Public Use
  Company Number: CHPA2011GB12129

PATIENT
  Sex: Male

DRUGS (11)
  1. IBUPROFEN [Suspect]
     Indication: PAIN
     Dosage: 600 MG, QD PRN
  2. DIAZEPAM [Concomitant]
     Dosage: 5 MG, BID
  3. CLOZAPINE [Suspect]
     Indication: SCHIZOPHRENIA
     Dosage: 400 MG, BID
     Route: 048
     Dates: start: 20081211, end: 20110807
  4. VALPROATE SODIUM [Concomitant]
     Dosage: 200 MG, BID
  5. LACTULOSE [Concomitant]
     Dosage: 30 ML, BID
  6. OMEPRAZOLE [Concomitant]
     Indication: GASTRITIS
     Dosage: 20 MG, QD
  7. PROCYCLIDINE HYDROCHLORIDE 2MG TAB [Concomitant]
     Dosage: 5 MG, TID
  8. VITAMIN B NOS [Concomitant]
     Dosage: 1DF, QD
  9. SIMVASTATIN [Concomitant]
     Dosage: 40 MG, QD
  10. CHLORPROMAZINE [Concomitant]
     Dosage: 50 MG TID AND 200 MG AT NIGHT
  11. CITALOPRAM HYDROBROMIDE [Concomitant]
     Dosage: 40 MG, QAM

REACTIONS (10)
  - MONOCYTE COUNT INCREASED [None]
  - WHITE BLOOD CELL COUNT INCREASED [None]
  - HAEMOPTYSIS [None]
  - METASTASES TO CENTRAL NERVOUS SYSTEM [None]
  - GENERAL PHYSICAL HEALTH DETERIORATION [None]
  - NEUTROPHIL COUNT INCREASED [None]
  - PNEUMONIA ASPIRATION [None]
  - COUGH [None]
  - OTORRHOEA [None]
  - MALIGNANT MELANOMA [None]
